FAERS Safety Report 8451550-2 (Version None)
Quarter: 2012Q2

REPORT INFORMATION
  Report Type: 
  Country: None (occurrence: None)
  Receive Date: 20120620
  Receipt Date: 20120307
  Transmission Date: 20120825
  Serious: No
  Sender: FDA-Public Use
  Company Number: US-VERTEX PHARMACEUTICALS INC.-AE-2012-003304

PATIENT
  Sex: Female
  Weight: 74.456 kg

DRUGS (9)
  1. XANAX [Concomitant]
     Indication: ANXIETY
     Route: 048
  2. ALDACTONE [Concomitant]
     Route: 048
  3. RIBAVIRIN [Concomitant]
     Indication: HEPATITIS C
     Route: 048
     Dates: start: 20120209
  4. PEGASYS [Concomitant]
     Indication: HEPATITIS C
     Route: 058
     Dates: start: 20120209
  5. COREG [Concomitant]
     Indication: HYPERTENSION
     Route: 048
  6. LASIX [Concomitant]
     Route: 048
  7. INCIVEK [Suspect]
     Indication: HEPATITIS C
     Route: 048
     Dates: start: 20120209
  8. LOSARTAN KCL [Concomitant]
     Indication: HYPERTENSION
     Route: 048
  9. HUMALOG [Concomitant]
     Indication: DIABETES MELLITUS
     Route: 058

REACTIONS (4)
  - CRYING [None]
  - FATIGUE [None]
  - DEPRESSION [None]
  - NAUSEA [None]
